FAERS Safety Report 8065471-0 (Version None)
Quarter: 2012Q1

REPORT INFORMATION
  Report Type: 
  Country: None (occurrence: None)
  Receive Date: 20120124
  Receipt Date: 20120117
  Transmission Date: 20120608
  Serious: Yes (Other)
  Sender: FDA-Public Use
  Company Number: US-BAYER-2012-006373

PATIENT
  Age: 69 Year
  Sex: Female
  Weight: 47 kg

DRUGS (3)
  1. ASPIRIN [Suspect]
     Indication: PAIN
     Dosage: 1 DF, ONCE
     Route: 048
     Dates: start: 20120110, end: 20120110
  2. BONIVA [Concomitant]
     Dosage: UNK
     Route: 048
  3. SYNTHROID [Concomitant]
     Dosage: 1 DF, QD
     Route: 048
     Dates: start: 19810101

REACTIONS (5)
  - PHARYNGEAL OEDEMA [None]
  - SWELLING FACE [None]
  - PRURITUS [None]
  - HYPERSENSITIVITY [None]
  - AGEUSIA [None]
